FAERS Safety Report 11062125 (Version 4)
Quarter: 2015Q2

REPORT INFORMATION
  Report Type: Spontaneous
  Country: FI (occurrence: FI)
  Receive Date: 20150424
  Receipt Date: 20150630
  Transmission Date: 20150821
  Serious: Yes (Disabling)
  Sender: FDA-Public Use
  Company Number: FI-JNJFOC-20150410594

PATIENT
  Sex: Female

DRUGS (4)
  1. RISPERDAL [Suspect]
     Active Substance: RISPERIDONE
     Indication: PSYCHOTIC DISORDER
     Route: 048
     Dates: start: 20140109
  2. THYROXIN [Concomitant]
     Active Substance: LEVOTHYROXINE
     Route: 048
  3. XEPLION [Interacting]
     Active Substance: PALIPERIDONE PALMITATE
     Indication: PSYCHOTIC DISORDER
     Route: 030
     Dates: start: 20140228, end: 20140714
  4. SERONIL [Interacting]
     Active Substance: FLUOXETINE HYDROCHLORIDE
     Indication: EATING DISORDER
     Route: 048
     Dates: start: 20131122

REACTIONS (19)
  - Drug interaction [Unknown]
  - Hypometabolism [Unknown]
  - Pituitary tumour benign [Not Recovered/Not Resolved]
  - Swelling [Unknown]
  - Hunger [Unknown]
  - Memory impairment [Unknown]
  - Blood prolactin increased [Not Recovered/Not Resolved]
  - Constipation [Unknown]
  - Disturbance in attention [Unknown]
  - Somnolence [Unknown]
  - Functional gastrointestinal disorder [Unknown]
  - Feeling abnormal [Unknown]
  - Vision blurred [Unknown]
  - Weight increased [Not Recovered/Not Resolved]
  - Dyspepsia [Unknown]
  - Fatigue [Unknown]
  - Extrapyramidal disorder [Unknown]
  - Asthenia [Unknown]
  - Pain in extremity [Unknown]
